FAERS Safety Report 18009703 (Version 1)
Quarter: 2020Q3

REPORT INFORMATION
  Report Type: Spontaneous
  Country: TW (occurrence: TW)
  Receive Date: 20200710
  Receipt Date: 20200710
  Transmission Date: 20201103
  Serious: Yes (Death)
  Sender: FDA-Public Use
  Company Number: TW-JNJFOC-20200700631

PATIENT
  Age: 82 Year
  Sex: Male

DRUGS (8)
  1. ZYTIGA [Suspect]
     Active Substance: ABIRATERONE ACETATE
     Indication: PROSTATE CANCER
     Route: 048
  2. ULTRACET [Concomitant]
     Active Substance: ACETAMINOPHEN\TRAMADOL HYDROCHLORIDE
     Indication: METASTASES TO BONE
     Dosage: 1 BD
     Route: 065
     Dates: start: 20200601
  3. ACETYLCYSTEIN [Concomitant]
     Active Substance: ACETYLCYSTEINE
     Indication: PNEUMONIA
     Dosage: 1 BID
     Route: 065
     Dates: start: 20200511
  4. RIVOTRIL [Concomitant]
     Active Substance: CLONAZEPAM
     Indication: INSOMNIA
     Dosage: 0.5 HS
     Route: 065
     Dates: start: 20200525
  5. FLUNARIZINE [Concomitant]
     Active Substance: FLUNARIZINE
     Indication: PNEUMONIA
     Dosage: 1 BID
     Route: 065
     Dates: start: 20200525
  6. NICAMETATE [Concomitant]
     Active Substance: NICAMETATE
     Indication: PNEUMONIA
     Dosage: 1 TID
     Route: 065
     Dates: start: 20200525
  7. DEXAMETHASONE. [Concomitant]
     Active Substance: DEXAMETHASONE
     Dosage: 1 QD
     Route: 065
     Dates: start: 20181015
  8. SOMA [Concomitant]
     Active Substance: CARISOPRODOL
     Indication: METASTASES TO BONE
     Dosage: 1 BID
     Route: 065
     Dates: start: 20170914, end: 20200601

REACTIONS (1)
  - Pneumonia [Fatal]

NARRATIVE: CASE EVENT DATE: 20200525
